FAERS Safety Report 12801925 (Version 1)
Quarter: 2016Q3

REPORT INFORMATION
  Report Type: Spontaneous
  Country: US (occurrence: US)
  Receive Date: 20160930
  Receipt Date: 20160930
  Transmission Date: 20161109
  Serious: Yes (Disabling)
  Sender: FDA-Public Use
  Company Number: None

PATIENT
  Age: 54 Year
  Sex: Female
  Weight: 57.15 kg

DRUGS (12)
  1. OMEPRAZOLE. [Concomitant]
     Active Substance: OMEPRAZOLE
  2. ALLIPURINOL [Concomitant]
  3. TYLENOL [Concomitant]
     Active Substance: ACETAMINOPHEN
  4. SIMVASTATIN. [Concomitant]
     Active Substance: SIMVASTATIN
  5. LANTUS [Concomitant]
     Active Substance: INSULIN GLARGINE
  6. SYNTHROID [Suspect]
     Active Substance: LEVOTHYROXINE SODIUM
     Indication: THYROID DISORDER
     Dosage: OTHER ORAL?
     Route: 048
  7. VENTOLIN [Concomitant]
     Active Substance: ALBUTEROL SULFATE
  8. SODIUM BICARBONATE. [Suspect]
     Active Substance: SODIUM BICARBONATE
  9. FUROSEMIDE. [Concomitant]
     Active Substance: FUROSEMIDE
  10. FLUDROCORTISONE [Concomitant]
     Active Substance: FLUDROCORTISONE
  11. CALCITROL [Concomitant]
     Active Substance: CALCITRIOL
  12. HUMALOG [Concomitant]
     Active Substance: INSULIN LISPRO

REACTIONS (6)
  - Hyperhidrosis [None]
  - Insomnia [None]
  - Weight increased [None]
  - Nausea [None]
  - Dyspnoea [None]
  - Nervousness [None]
